FAERS Safety Report 5717084-0 (Version None)
Quarter: 2008Q2

REPORT INFORMATION
  Report Type: 
  Country: None (occurrence: None)
  Receive Date: 20080424
  Receipt Date: 20080418
  Transmission Date: 20081010
  Serious: Yes (Hospitalization)
  Sender: FDA-Public Use
  Company Number: JP-GENENTECH-259615

PATIENT
  Sex: Male
  Weight: 68 kg

DRUGS (10)
  1. RITUXAN [Suspect]
     Indication: NON-HODGKIN'S LYMPHOMA
     Dosage: 100 MG, SINGLE
     Route: 042
     Dates: start: 20070703
  2. RITUXAN [Suspect]
     Dosage: 100 MG, SINGLE
     Route: 042
     Dates: start: 20070704
  3. RITUXAN [Suspect]
     Dosage: 400 MG, SINGLE
     Route: 042
     Dates: start: 20070705
  4. RITUXAN [Suspect]
     Dosage: 700 MG, SINGLE
     Route: 042
     Dates: start: 20070710
  5. RITUXAN [Suspect]
     Dosage: 700 MG, SINGLE
     Route: 042
     Dates: start: 20070720
  6. RITUXAN [Suspect]
     Dosage: 700 MG, SINGLE
     Route: 042
     Dates: start: 20070727
  7. FAMOTIDINE [Concomitant]
     Indication: PREMEDICATION
  8. BAKTAR [Concomitant]
     Indication: PREMEDICATION
  9. ZOVIRAX [Concomitant]
     Indication: PREMEDICATION
  10. ALOSITOL [Concomitant]
     Indication: PREMEDICATION

REACTIONS (2)
  - PANNICULITIS [None]
  - PYODERMA GANGRENOSUM [None]
